FAERS Safety Report 5025597-2 (Version None)
Quarter: 2006Q2

REPORT INFORMATION
  Report Type: 
  Country: None (occurrence: None)
  Receive Date: 20060614
  Receipt Date: 20060609
  Transmission Date: 20061013
  Serious: Yes (Death, Life-Threatening, Other)
  Sender: FDA-Public Use
  Company Number: 2006UW12403

PATIENT
  Age: 66 Year
  Sex: Female
  Weight: 53.5 kg

DRUGS (2)
  1. IRESSA [Suspect]
     Indication: LUNG NEOPLASM MALIGNANT
     Route: 048
  2. SYNTHROID [Concomitant]

REACTIONS (4)
  - CYSTITIS [None]
  - DEATH [None]
  - LUNG CARCINOMA CELL TYPE UNSPECIFIED RECURRENT [None]
  - STAPHYLOCOCCAL INFECTION [None]
